FAERS Safety Report 7244272-7 (Version None)
Quarter: 2011Q1

REPORT INFORMATION
  Report Type: 
  Country: None (occurrence: None)
  Receive Date: 20110118
  Receipt Date: 20110107
  Transmission Date: 20110831
  Serious: Yes (Other)
  Sender: FDA-Public Use
  Company Number: FR-1184588

PATIENT
  Age: 1 Month
  Sex: Male

DRUGS (2)
  1. AZOPT [Suspect]
     Indication: CATARACT CONGENITAL
     Dosage: OPHTHALMIC
     Route: 047
  2. ATROPINE SULFATE [Suspect]
     Dosage: OPHTHALMIC
     Route: 047

REACTIONS (1)
  - CORNEAL DYSTROPHY [None]
